FAERS Safety Report 7667183-1 (Version None)
Quarter: 2011Q3

REPORT INFORMATION
  Report Type: 
  Country: None (occurrence: None)
  Receive Date: 20110806
  Receipt Date: 20110513
  Transmission Date: 20111222
  Serious: No
  Sender: FDA-Public Use
  Company Number: US-ABBOTT-11P-163-0725316-00

PATIENT
  Sex: Female
  Weight: 98.972 kg

DRUGS (11)
  1. NIASPAN [Suspect]
     Indication: BLOOD CHOLESTEROL INCREASED
     Dosage: AT BEDTIME
     Route: 048
     Dates: start: 20110301
  2. NIASPAN [Suspect]
     Dosage: AT BEDTIME
     Route: 048
     Dates: start: 20110401
  3. HYDRALAZINE HCL [Concomitant]
     Indication: PRODUCT USED FOR UNKNOWN INDICATION
  4. HYDROCHLOROTHIAZIDE [Concomitant]
     Indication: PRODUCT USED FOR UNKNOWN INDICATION
     Route: 048
  5. LEVOTHYROXINE SODIUM [Concomitant]
     Indication: PRODUCT USED FOR UNKNOWN INDICATION
     Route: 048
  6. BENICAR [Concomitant]
     Indication: PRODUCT USED FOR UNKNOWN INDICATION
     Route: 048
  7. LISINOPRIL [Concomitant]
     Indication: PRODUCT USED FOR UNKNOWN INDICATION
     Route: 048
  8. METOPROLOL TARTRATE [Concomitant]
     Indication: PRODUCT USED FOR UNKNOWN INDICATION
     Route: 048
  9. METFORMIN HCL [Concomitant]
     Indication: PRODUCT USED FOR UNKNOWN INDICATION
     Route: 048
  10. VIT D [Concomitant]
     Indication: PRODUCT USED FOR UNKNOWN INDICATION
     Route: 048
  11. ASPIRIN [Concomitant]
     Indication: PRODUCT USED FOR UNKNOWN INDICATION
     Dosage: AT BEDTIME
     Route: 048

REACTIONS (2)
  - FLUSHING [None]
  - BLOOD CHOLESTEROL INCREASED [None]
